FAERS Safety Report 6276362-X (Version None)
Quarter: 2009Q3

REPORT INFORMATION
  Report Type: 
  Country: None (occurrence: None)
  Receive Date: 20090722
  Receipt Date: 20090710
  Transmission Date: 20100115
  Serious: Yes (Other)
  Sender: FDA-Public Use
  Company Number: PHHY2009DE11982

PATIENT
  Sex: Male
  Weight: 87 kg

DRUGS (2)
  1. ZOMETA [Suspect]
     Indication: METASTASES TO BONE
     Dosage: 4 MG, QMO
     Route: 042
     Dates: start: 20031205, end: 20090101
  2. RADIOTHERAPY [Concomitant]
     Indication: METASTASES TO BONE
     Dosage: UNK
     Dates: start: 20040101, end: 20040201

REACTIONS (1)
  - OSTEONECROSIS [None]
